FAERS Safety Report 7654926-6 (Version None)
Quarter: 2011Q3

REPORT INFORMATION
  Report Type: 
  Country: None (occurrence: None)
  Receive Date: 20110804
  Receipt Date: 20110722
  Transmission Date: 20111222
  Serious: Yes (Other)
  Sender: FDA-Public Use
  Company Number: IE-US-EMD SERONO, INC.-7011929

PATIENT
  Sex: Female

DRUGS (3)
  1. REBIF [Suspect]
     Route: 058
     Dates: start: 20090626, end: 20091125
  2. REBIF [Suspect]
     Route: 058
     Dates: start: 20091125
  3. REBIF [Suspect]
     Indication: RELAPSING-REMITTING MULTIPLE SCLEROSIS
     Route: 058
     Dates: start: 20021118, end: 20090626

REACTIONS (5)
  - HEPATIC STEATOSIS [None]
  - TYPE 2 DIABETES MELLITUS [None]
  - FREQUENT BOWEL MOVEMENTS [None]
  - FLATULENCE [None]
  - CHEST PAIN [None]
